FAERS Safety Report 5099526-X (Version None)
Quarter: 2006Q3

REPORT INFORMATION
  Report Type: 
  Country: None (occurrence: None)
  Receive Date: 20060906
  Receipt Date: 20060825
  Transmission Date: 20061208
  Serious: Yes (Hospitalization, Disabling, Other)
  Sender: FDA-Public Use
  Company Number: 2006104220

PATIENT
  Age: 11 Year
  Sex: Male

DRUGS (1)
  1. DILANTIN [Suspect]
     Indication: CONVULSION
     Dates: start: 20011101

REACTIONS (8)
  - BLINDNESS UNILATERAL [None]
  - DRY SKIN [None]
  - KERATOCONJUNCTIVITIS SICCA [None]
  - PYREXIA [None]
  - RASH [None]
  - SCAR [None]
  - SKIN DISCOLOURATION [None]
  - STEVENS-JOHNSON SYNDROME [None]
